FAERS Safety Report 10788080 (Version 1)
Quarter: 2015Q1

REPORT INFORMATION
  Report Type: Spontaneous
  Country: US (occurrence: None)
  Receive Date: 20150210
  Receipt Date: 20150210
  Transmission Date: 20150721
  Serious: Yes (Other)
  Sender: FDA-Public Use
  Company Number: COL_19101_2015

PATIENT
  Age: 47 Year
  Sex: Female

DRUGS (1)
  1. COLGATE BAKING SODA AND PEROXIDE WHITENING BRISK MINT [Suspect]
     Active Substance: SODIUM MONOFLUOROPHOSPHATE
     Indication: PRODUCT USED FOR UNKNOWN INDICATION
     Dosage: NI/ONCE/ORAL
     Route: 048
     Dates: start: 20150204, end: 20150204

REACTIONS (6)
  - Swollen tongue [None]
  - Mouth swelling [None]
  - Erythema [None]
  - Rash [None]
  - Pruritus [None]
  - Hypersensitivity [None]

NARRATIVE: CASE EVENT DATE: 20150204
